FAERS Safety Report 8550292-2 (Version None)
Quarter: 2012Q3

REPORT INFORMATION
  Report Type: 
  Country: None (occurrence: None)
  Receive Date: 20120730
  Receipt Date: 20120726
  Transmission Date: 20120928
  Serious: Yes (Other)
  Sender: FDA-Public Use
  Company Number: PHHY2012BR065146

PATIENT
  Sex: Male

DRUGS (1)
  1. RITALIN LA [Suspect]
     Dosage: 20 MG, UNK
     Route: 048

REACTIONS (4)
  - CRYING [None]
  - DEPRESSED MOOD [None]
  - NERVOUSNESS [None]
  - ENOPHTHALMOS [None]
